FAERS Safety Report 7721295-2 (Version None)
Quarter: 2011Q3

REPORT INFORMATION
  Report Type: 
  Country: None (occurrence: None)
  Receive Date: 20110831
  Receipt Date: 20110818
  Transmission Date: 20111222
  Serious: Yes (Other)
  Sender: FDA-Public Use
  Company Number: PHHY2011NL74954

PATIENT
  Sex: Female

DRUGS (4)
  1. TASIGNA [Suspect]
     Indication: CHRONIC MYELOID LEUKAEMIA
     Dosage: UNK
     Route: 048
     Dates: start: 20110709
  2. THYRAX [Concomitant]
  3. STRUMAZOL [Concomitant]
  4. RADIOACTIVE IODINE TREATMENT [Concomitant]

REACTIONS (4)
  - BONE MARROW FAILURE [None]
  - FATIGUE [None]
  - FULL BLOOD COUNT DECREASED [None]
  - PLATELET COUNT DECREASED [None]
